FAERS Safety Report 26150175 (Version 2)
Quarter: 2025Q4

REPORT INFORMATION
  Report Type: Spontaneous
  Country: US (occurrence: US)
  Receive Date: 20251212
  Receipt Date: 20251218
  Transmission Date: 20260117
  Serious: No
  Sender: SANOFI AVENTIS
  Company Number: US-SA-2025SA369821

PATIENT
  Sex: Female

DRUGS (1)
  1. DUPIXENT [Suspect]
     Active Substance: DUPILUMAB
     Indication: Dermatitis atopic
     Dosage: 300 MG, QOW
     Route: 058
     Dates: start: 20240103

REACTIONS (5)
  - Sleep disorder due to a general medical condition [Unknown]
  - Discomfort [Unknown]
  - Pain of skin [Unknown]
  - Dermatitis atopic [Unknown]
  - Rash [Unknown]
